FAERS Safety Report 4949031-3 (Version None)
Quarter: 2006Q1

REPORT INFORMATION
  Report Type: 
  Country: None (occurrence: None)
  Receive Date: 20060321
  Receipt Date: 20060315
  Transmission Date: 20060701
  Serious: Yes (Other)
  Sender: FDA-Public Use
  Company Number: CA-GLAXOSMITHKLINE-A0597919A

PATIENT
  Sex: Female

DRUGS (2)
  1. BUPROPION HCL [Suspect]
     Dosage: 300MG PER DAY
     Route: 048
     Dates: start: 20060114
  2. NO CONCURRENT MEDICATIONS [Concomitant]

REACTIONS (1)
  - ABORTION SPONTANEOUS [None]
